FAERS Safety Report 7123593-2 (Version None)
Quarter: 2010Q4

REPORT INFORMATION
  Report Type: 
  Country: None (occurrence: None)
  Receive Date: 20101125
  Receipt Date: 20101117
  Transmission Date: 20110411
  Serious: Yes (Hospitalization)
  Sender: FDA-Public Use
  Company Number: IT-BRISTOL-MYERS SQUIBB COMPANY-15344757

PATIENT
  Age: 53 Year
  Sex: Male
  Weight: 70 kg

DRUGS (4)
  1. CETUXIMAB [Suspect]
     Indication: HEAD AND NECK CANCER
     Dosage: MOST RECENT INFUSION ON 04OCT2010.NO OF INFUSION:16,
     Route: 042
     Dates: start: 20100614, end: 20101014
  2. CISPLATIN [Suspect]
     Indication: HEAD AND NECK CANCER
     Dosage: MOST RECENT INFUSION ON 04OCT2010.NO OF INFUSION:6
     Route: 042
     Dates: start: 20100614
  3. CILENGITIDE [Suspect]
     Indication: HEAD AND NECK CANCER
     Dosage: MOST RECENT INFUSION ON 07OCT2010.NO OF INFUSION:35,PERMANENTLY DISCONTINUED ON 14OCT10.
     Route: 042
     Dates: start: 20100614, end: 20101007
  4. FLUOROURACIL [Suspect]
     Indication: HEAD AND NECK CANCER
     Dosage: MOST RECENT INFUSION ON 04OCT2010.NO OF INFUSION:6.CONTINUOUS INFUSION FROM DAY 1 TO 4 OF CYCLE
     Route: 042
     Dates: start: 20100614

REACTIONS (1)
  - PULMONARY ARTERY THROMBOSIS [None]
